FAERS Safety Report 6159037-7 (Version None)
Quarter: 2009Q2

REPORT INFORMATION
  Report Type: 
  Country: None (occurrence: None)
  Receive Date: 20090417
  Receipt Date: 20090408
  Transmission Date: 20091009
  Serious: Yes (Death, Life-Threatening, Hospitalization, Other)
  Sender: FDA-Public Use
  Company Number: DE-PFIZER INC-2009163829

PATIENT

DRUGS (6)
  1. SUNITINIB MALATE [Suspect]
     Indication: METASTATIC RENAL CELL CARCINOMA
     Dosage: 50 MG, 1X/DAY
     Route: 048
     Dates: start: 20080712
  2. DYTIDE [Concomitant]
     Dosage: UNK
     Dates: start: 19830101
  3. SOTALOL [Concomitant]
     Dosage: UNK
     Dates: start: 19830101
  4. MARCUMAR [Concomitant]
     Dosage: UNK
     Route: 048
     Dates: start: 20080501
  5. NIFEDIPINE [Concomitant]
     Dosage: 10 MG, UNK
     Dates: start: 20080714
  6. VALSARTAN [Concomitant]
     Dosage: UNK
     Dates: start: 20080714

REACTIONS (4)
  - DISEASE PROGRESSION [None]
  - HYPERTENSION [None]
  - NAUSEA [None]
  - RENAL CELL CARCINOMA [None]
